FAERS Safety Report 21410867 (Version 3)
Quarter: 2023Q2

REPORT INFORMATION
  Report Type: Other
  Country: ZA (occurrence: None)
  Receive Date: 20221005
  Receipt Date: 20230407
  Transmission Date: 20230722
  Serious: Yes (Other)
  Sender: FDA-Public Use
  Company Number: ZA-ROCHE-3185541

PATIENT
  Age: 34 Year
  Sex: Female

DRUGS (3)
  1. RITUXIMAB [Suspect]
     Active Substance: RITUXIMAB
     Indication: Pemphigus
     Dosage: REPEATED 6-MONTHLY
     Route: 041
     Dates: start: 20220302
  2. RITUXIMAB [Suspect]
     Active Substance: RITUXIMAB
     Indication: Lichen planus
  3. MABTHERA [Suspect]
     Active Substance: RITUXIMAB
     Indication: Pemphigus
     Dosage: REPEATED 6-MONTHLY
     Route: 041

REACTIONS (24)
  - Off label use [Unknown]
  - Haemoglobin decreased [Unknown]
  - C-reactive protein increased [Unknown]
  - Blister [Unknown]
  - Gastric disorder [Unknown]
  - Constipation [Unknown]
  - Pain [Unknown]
  - Muscle spasms [Unknown]
  - Pyrexia [Unknown]
  - Malaise [Unknown]
  - Gastrointestinal pain [Unknown]
  - Migraine [Unknown]
  - Dizziness [Unknown]
  - Hiatus hernia [Unknown]
  - Abdominal discomfort [Unknown]
  - Choking sensation [Unknown]
  - Vomiting [Unknown]
  - Flatulence [Unknown]
  - Discomfort [Unknown]
  - Musculoskeletal stiffness [Unknown]
  - Paraesthesia [Unknown]
  - Hypoaesthesia [Unknown]
  - Lichen planus [Unknown]
  - Pemphigus [Unknown]

NARRATIVE: CASE EVENT DATE: 20220813
